FAERS Safety Report 5957634-2 (Version None)
Quarter: 2008Q4

REPORT INFORMATION
  Report Type: 
  Country: None (occurrence: None)
  Receive Date: 20081119
  Receipt Date: 20081106
  Transmission Date: 20090506
  Serious: Yes (Other)
  Sender: FDA-Public Use
  Company Number: US-BRISTOL-MYERS SQUIBB COMPANY-14245484

PATIENT
  Age: 54 Year
  Sex: Male
  Weight: 77 kg

DRUGS (11)
  1. SINEMET [Suspect]
     Indication: PARKINSON'S DISEASE
     Dosage: 1 D.F= 25-100MG
     Route: 048
     Dates: start: 20000101
  2. WELLBUTRIN [Concomitant]
  3. REQUIP [Concomitant]
  4. TASMAR [Concomitant]
  5. AMBIEN [Concomitant]
  6. XANAX [Concomitant]
  7. CLONAZEPAM [Concomitant]
  8. SINEMET CR [Concomitant]
  9. TOLCAPONE [Concomitant]
  10. ZOLPIDEM TARTRATE [Concomitant]
  11. ROPINIROLE [Concomitant]

REACTIONS (2)
  - DRUG INEFFECTIVE [None]
  - PARALYSIS [None]
